FAERS Safety Report 25750741 (Version 2)
Quarter: 2025Q3

REPORT INFORMATION
  Report Type: Spontaneous
  Country: US (occurrence: US)
  Receive Date: 20250902
  Receipt Date: 20250917
  Transmission Date: 20251021
  Serious: Yes (Death, Life-Threatening, Hospitalization, Other)
  Sender: ALKEM
  Company Number: None

PATIENT
  Age: 62 Year
  Sex: Male

DRUGS (2)
  1. MYCOPHENOLATE MOFETIL [Suspect]
     Active Substance: MYCOPHENOLATE MOFETIL
     Indication: Immunosuppressant drug therapy
     Route: 065
  2. ECULIZUMAB [Suspect]
     Active Substance: ECULIZUMAB
     Indication: Microangiopathic haemolytic anaemia
     Route: 065

REACTIONS (12)
  - Respiratory failure [Fatal]
  - Haemodynamic instability [Fatal]
  - Pneumatosis intestinalis [Unknown]
  - Pneumoperitoneum [Unknown]
  - Multiple organ dysfunction syndrome [Unknown]
  - Gastrointestinal necrosis [Unknown]
  - Intestinal perforation [Unknown]
  - Disseminated aspergillosis [Fatal]
  - Bronchopulmonary aspergillosis [Fatal]
  - Bacteraemia [Unknown]
  - Peritonitis [Unknown]
  - Lung transplant rejection [Unknown]
